FAERS Safety Report 5226419-7 (Version None)
Quarter: 2006Q4

REPORT INFORMATION
  Report Type: 
  Country: None (occurrence: None)
  Receive Date: 20061201
  Receipt Date: 20060927
  Transmission Date: 20070319
  Serious: No
  Sender: FDA-Public Use
  Company Number: US200609007090

PATIENT
  Age: 58 Year
  Sex: Female

DRUGS (1)
  1. CYMBALTA [Suspect]
     Indication: FIBROMYALGIA
     Dosage: 60 MG, ORAL
     Route: 048
     Dates: start: 20060924

REACTIONS (9)
  - ANXIETY [None]
  - BRUXISM [None]
  - DIZZINESS [None]
  - DRY MOUTH [None]
  - FATIGUE [None]
  - HUNGER [None]
  - NAUSEA [None]
  - TENSION [None]
  - THINKING ABNORMAL [None]
